FAERS Safety Report 8832872 (Version 1)
Quarter: 2012Q4

REPORT INFORMATION
  Report Type: Spontaneous
  Country: US (occurrence: None)
  Receive Date: 20121009
  Receipt Date: 20121009
  Transmission Date: 20130627
  Serious: Yes (Life-Threatening)
  Sender: FDA-Public Use
  Company Number: None

PATIENT
  Age: 22 Year
  Sex: Male
  Weight: 107 kg

DRUGS (1)
  1. DEXMEDETOMIDINE [Suspect]
     Route: 042

REACTIONS (3)
  - Cardiac arrest [None]
  - Bradycardia [None]
  - Bronchoscopy abnormal [None]
